FAERS Safety Report 5780392-1 (Version None)
Quarter: 2008Q2

REPORT INFORMATION
  Report Type: 
  Country: None (occurrence: None)
  Receive Date: 20080620
  Receipt Date: 20080618
  Transmission Date: 20081010
  Serious: Yes (Other)
  Sender: FDA-Public Use
  Company Number: BR-BRISTOL-MYERS SQUIBB COMPANY-14218036

PATIENT

DRUGS (2)
  1. AMPHOTERICIN B [Suspect]
     Indication: VISCERAL LEISHMANIASIS
  2. MEGLUMINE ANTIMONIATE [Suspect]
     Indication: VISCERAL LEISHMANIASIS

REACTIONS (3)
  - BLOOD CREATININE INCREASED [None]
  - HERPES ZOSTER [None]
  - VISCERAL LEISHMANIASIS [None]
